FAERS Safety Report 13583009 (Version 20)
Quarter: 2020Q2

REPORT INFORMATION
  Report Type: Report from Study
  Country: US (occurrence: US)
  Receive Date: 20170525
  Receipt Date: 20200506
  Transmission Date: 20200713
  Serious: Yes (Death, Hospitalization, Other)
  Sender: FDA-Public Use
  Company Number: US-ACTELION-A-US2017-153683

PATIENT
  Age: 74 Year
  Sex: Male
  Weight: 78.91 kg

DRUGS (7)
  1. OPSUMIT [Suspect]
     Active Substance: MACITENTAN
     Indication: PULMONARY ARTERIAL HYPERTENSION
     Dosage: 10 MG, QD
     Route: 048
     Dates: start: 20161129, end: 20181115
  2. VERAPAMIL [Concomitant]
     Active Substance: VERAPAMIL HYDROCHLORIDE
  3. ORENITRAM [Suspect]
     Active Substance: TREPROSTINIL
     Indication: PRODUCT USED FOR UNKNOWN INDICATION
     Dosage: 5.125 MG, TID
     Route: 065
  4. LASIX [Concomitant]
     Active Substance: FUROSEMIDE
  5. REVATIO [Concomitant]
     Active Substance: SILDENAFIL CITRATE
     Dosage: 10 MG, BID
  6. ELIQUIS [Concomitant]
     Active Substance: APIXABAN
  7. ADEMPAS [Concomitant]
     Active Substance: RIOCIGUAT

REACTIONS (35)
  - Haematochezia [Recovered/Resolved]
  - Fatigue [Unknown]
  - Acute kidney injury [Recovered/Resolved with Sequelae]
  - Oedema [Recovered/Resolved]
  - Dyspnoea [Unknown]
  - Pulmonary hypertension [Unknown]
  - Colectomy [Recovered/Resolved]
  - Ascites [Unknown]
  - Syncope [Recovered/Resolved]
  - Haemorrhage [Unknown]
  - Gastrointestinal haemorrhage [Recovered/Resolved]
  - Dyspnoea exertional [Unknown]
  - End stage renal disease [Unknown]
  - Hypotension [Fatal]
  - Mental status changes [Fatal]
  - Adenocarcinoma of colon [Recovered/Resolved]
  - Haemoglobin decreased [Recovered/Resolved with Sequelae]
  - Epigastric discomfort [Unknown]
  - Blood creatinine increased [Recovered/Resolved]
  - Internal haemorrhage [Not Recovered/Not Resolved]
  - Hypoxia [Recovered/Resolved]
  - Orthostatic hypotension [Unknown]
  - Respiratory distress [Recovered/Resolved]
  - Acute respiratory failure [Recovered/Resolved]
  - Diverticulitis [Unknown]
  - Nausea [Unknown]
  - Diarrhoea [Unknown]
  - Headache [Recovered/Resolved]
  - Nasal congestion [Unknown]
  - Abdominal discomfort [Recovered/Resolved]
  - Anaemia [Recovered/Resolved with Sequelae]
  - Bladder cancer [Recovered/Resolved]
  - Transfusion [Recovered/Resolved with Sequelae]
  - Asthenia [Unknown]
  - Oedema peripheral [Unknown]

NARRATIVE: CASE EVENT DATE: 201612
